FAERS Safety Report 8204597-5 (Version None)
Quarter: 2012Q1

REPORT INFORMATION
  Report Type: 
  Country: None (occurrence: None)
  Receive Date: 20120313
  Receipt Date: 20120307
  Transmission Date: 20120608
  Serious: Yes (Hospitalization)
  Sender: FDA-Public Use
  Company Number: US-PFIZER INC-2012062359

PATIENT

DRUGS (2)
  1. PROTONIX [Suspect]
     Dosage: UNK
  2. DETROL [Suspect]
     Dosage: UNK

REACTIONS (2)
  - MALAISE [None]
  - SURGERY [None]
